FAERS Safety Report 9587751 (Version 1)
Quarter: 2013Q4

REPORT INFORMATION
  Report Type: Spontaneous
  Country: US (occurrence: US)
  Receive Date: 20131003
  Receipt Date: 20131003
  Transmission Date: 20140711
  Serious: No
  Sender: FDA-Public Use
  Company Number: US-COVIDIEN/TYCO HEALTHCARE/MALLINCKRODT-T201303632

PATIENT
  Sex: Male
  Weight: 77.98 kg

DRUGS (5)
  1. HYDROMORPHONE [Suspect]
     Indication: PAIN
     Dosage: 4 MG TABLET, UNK, PRN
     Route: 048
     Dates: start: 20130204
  2. FUROSEMIDE [Concomitant]
     Indication: CARDIAC FAILURE CONGESTIVE
     Dosage: 40 MG TABLET, QD
     Route: 048
  3. DIGOXIN [Concomitant]
     Indication: CARDIAC FAILURE CONGESTIVE
     Dosage: 0.125 MG TABLET , QD
     Route: 048
  4. LISINOPRIL [Concomitant]
     Indication: CARDIAC FAILURE CONGESTIVE
     Dosage: 20 MG TABLET, QD
     Route: 048
  5. METOPROLOL [Concomitant]
     Indication: CARDIAC FAILURE CONGESTIVE
     Dosage: 25 MG TABLET, QD
     Route: 048

REACTIONS (2)
  - Dry skin [Not Recovered/Not Resolved]
  - Urticaria [Not Recovered/Not Resolved]
